FAERS Safety Report 10877140 (Version 1)
Quarter: 2015Q1

REPORT INFORMATION
  Report Type: Spontaneous
  Country: US (occurrence: None)
  Receive Date: 20150224
  Receipt Date: 20150224
  Transmission Date: 20150721
  Serious: Yes (Hospitalization, Other)
  Sender: FDA-Public Use
  Company Number: 2015COR00036

PATIENT
  Age: 51 Year
  Sex: Male

DRUGS (2)
  1. MIRACLE MOUTHWASH [Concomitant]
  2. DOXYCYCLINE. [Suspect]
     Active Substance: DOXYCYCLINE
     Indication: LYME DISEASE

REACTIONS (2)
  - Pancreatitis acute [None]
  - Multi-organ failure [None]
